FAERS Safety Report 6111009-4 (Version None)
Quarter: 2009Q1

REPORT INFORMATION
  Report Type: 
  Country: None (occurrence: None)
  Receive Date: 20090311
  Receipt Date: 20090304
  Transmission Date: 20090719
  Serious: Yes (Other)
  Sender: FDA-Public Use
  Company Number: PHHY2009BE08146

PATIENT
  Sex: Male
  Weight: 3.932 kg

DRUGS (1)
  1. ELIDEL [Suspect]
     Dosage: UNK
     Route: 064

REACTIONS (4)
  - ASTHMA [None]
  - DRUG EXPOSURE DURING PREGNANCY [None]
  - JAUNDICE NEONATAL [None]
  - RESPIRATORY SYNCYTIAL VIRUS INFECTION [None]
